FAERS Safety Report 11391862 (Version 2)
Quarter: 2015Q3

REPORT INFORMATION
  Report Type: Report from Study
  Country: GT (occurrence: GT)
  Receive Date: 20150818
  Receipt Date: 20150908
  Transmission Date: 20151125
  Serious: Yes (Hospitalization, Other)
  Sender: FDA-Public Use
  Company Number: GT-BAYER-2015-398187

PATIENT
  Age: 57 Year
  Sex: Male

DRUGS (2)
  1. TAMOXIFEN [Concomitant]
     Active Substance: TAMOXIFEN
  2. NEXAVAR [Suspect]
     Active Substance: SORAFENIB
     Indication: HEPATOCELLULAR CARCINOMA
     Dosage: 400 MG, BID
     Route: 048
     Dates: start: 20150710, end: 20150810

REACTIONS (6)
  - Mental disorder [Recovered/Resolved]
  - Pain [Recovered/Resolved]
  - Toxicity to various agents [Recovered/Resolved]
  - Drug intolerance [Recovered/Resolved]
  - Toxic encephalopathy [Recovered/Resolved]
  - Speech disorder [Recovered/Resolved]

NARRATIVE: CASE EVENT DATE: 20150803
